FAERS Safety Report 9843842 (Version 1)
Quarter: 2014Q1

REPORT INFORMATION
  Report Type: Spontaneous
  Country: US (occurrence: US)
  Receive Date: 20140126
  Receipt Date: 20140126
  Transmission Date: 20141002
  Serious: No
  Sender: FDA-Public Use
  Company Number: US-TEVA-458727USA

PATIENT
  Age: 21 Year
  Sex: Female
  Weight: 52.21 kg

DRUGS (3)
  1. PLAN B ONE-STEP [Suspect]
     Indication: POST COITAL CONTRACEPTION
     Dosage: 1.5 MILLIGRAM DAILY;
     Route: 048
     Dates: start: 201312, end: 201312
  2. LUTERA [Concomitant]
     Indication: CONTRACEPTION
  3. ANTIBIOTICS [Concomitant]

REACTIONS (1)
  - Menstruation irregular [Recovered/Resolved]
